FAERS Safety Report 7757028-3 (Version None)
Quarter: 2011Q3

REPORT INFORMATION
  Report Type: 
  Country: None (occurrence: None)
  Receive Date: 20110916
  Receipt Date: 20110907
  Transmission Date: 20111222
  Serious: Yes (Hospitalization, Other)
  Sender: FDA-Public Use
  Company Number: US-UCBSA-041089

PATIENT
  Age: 18 Year
  Sex: Female

DRUGS (10)
  1. VALGANCICLOVIR [Concomitant]
  2. CEFDINIR [Concomitant]
  3. TACROLIMUS [Interacting]
     Indication: IMMUNOSUPPRESSION
  4. TACROLIMUS [Interacting]
     Dosage: HELD FOR 24 HOURS, THEN REDUCED TO 4 MG
  5. OMEPRAZOLE [Suspect]
  6. PREDNISONE [Concomitant]
  7. SULFAMETHOXAZOLE AND TRIMETHOPRIM [Concomitant]
  8. MYCOPHENOLATE MOFETIL [Concomitant]
     Indication: IMMUNOSUPPRESSION
  9. CARVEDILOL [Concomitant]
  10. ESOMEPRAZOLE SODIUM [Interacting]

REACTIONS (2)
  - DRUG INTERACTION [None]
  - IMMUNOSUPPRESSANT DRUG LEVEL INCREASED [None]
